FAERS Safety Report 5766628-1 (Version None)
Quarter: 2008Q2

REPORT INFORMATION
  Report Type: 
  Country: None (occurrence: None)
  Receive Date: 20080609
  Receipt Date: 20080528
  Transmission Date: 20081010
  Serious: Yes (Hospitalization)
  Sender: FDA-Public Use
  Company Number: 235035J08USA

PATIENT
  Age: 57 Year
  Sex: Female
  Weight: 52.1637 kg

DRUGS (6)
  1. REBIF [Suspect]
     Indication: MULTIPLE SCLEROSIS
     Dosage: 44 MCG, 1 IN 3 WEEKS, SUBCUTANEOUS
     Route: 058
     Dates: start: 20070222, end: 20070501
  2. TYLENOL (COTYLENOL) [Concomitant]
  3. DEMEROL [Concomitant]
  4. XANAX [Concomitant]
  5. DURAGESIC PATCHES (FENTANYL) [Concomitant]
  6. OXYCONTIN [Concomitant]

REACTIONS (4)
  - INFLUENZA LIKE ILLNESS [None]
  - PROGRESSIVE MULTIPLE SCLEROSIS [None]
  - VOMITING [None]
  - WEIGHT DECREASED [None]
